FAERS Safety Report 5484978-3 (Version None)
Quarter: 2007Q4

REPORT INFORMATION
  Report Type: 
  Country: None (occurrence: None)
  Receive Date: 20071004
  Receipt Date: 20070921
  Transmission Date: 20080405
  Serious: Yes (Hospitalization)
  Sender: FDA-Public Use
  Company Number: TH-IGSA-IG480

PATIENT
  Age: 64 Year
  Sex: Male
  Weight: 32.659 kg

DRUGS (6)
  1. FLEBOGAMMA (HUMAN NORMAL IMMUNOGLOBULIN [Suspect]
     Indication: DEMYELINATING POLYNEUROPATHY
     Dosage: 30 G IV
     Route: 042
     Dates: start: 20070820, end: 20070825
  2. FLEBOGAMMA (HUMAN NORMAL IMMUNOGLOBULIN [Suspect]
     Indication: DEMYELINATING POLYNEUROPATHY
     Dosage: 30G
     Route: 042
  3. GABAPENTIN [Concomitant]
  4. FELODIPINE [Concomitant]
  5. PROPRANOLOL [Concomitant]
  6. RAMIPRIL [Concomitant]

REACTIONS (4)
  - DEHYDRATION [None]
  - HEADACHE [None]
  - HYPONATRAEMIA [None]
  - NAUSEA [None]
